FAERS Safety Report 14233546 (Version 1)
Quarter: 2017Q4

REPORT INFORMATION
  Report Type: Spontaneous
  Country: US (occurrence: US)
  Receive Date: 20171129
  Receipt Date: 20171129
  Transmission Date: 20180321
  Serious: Yes (Hospitalization)
  Sender: FDA-Public Use
  Company Number: US-MYLANLABS-2017M1074592

PATIENT
  Age: 58 Year
  Sex: Female

DRUGS (10)
  1. LIDOCAINE. [Concomitant]
     Active Substance: LIDOCAINE
     Indication: MOUTH ULCERATION
     Route: 061
  2. PANTOPRAZOLE [Concomitant]
     Active Substance: PANTOPRAZOLE
     Indication: PRODUCT USED FOR UNKNOWN INDICATION
     Dosage: 40 MG EVERY MORNING
     Route: 048
  3. AMITRIPTYLINE [Suspect]
     Active Substance: AMITRIPTYLINE
     Indication: NECK PAIN
     Dosage: 3% UP TO 8 TIMES DAILY
     Route: 061
  4. AMITRIPTYLINE [Suspect]
     Active Substance: AMITRIPTYLINE
     Dosage: 3% UP TO 8 TIMES DAILY
     Route: 048
  5. VENLAFAXINE [Suspect]
     Active Substance: VENLAFAXINE HYDROCHLORIDE
     Indication: DEPRESSION
     Dosage: 300 MG/DAY
     Route: 048
  6. LACTULOSE. [Concomitant]
     Active Substance: LACTULOSE
     Indication: PRODUCT USED FOR UNKNOWN INDICATION
     Dosage: 10 UNK, UNK
     Route: 048
  7. RIFAXIMIN. [Concomitant]
     Active Substance: RIFAXIMIN
     Indication: PRODUCT USED FOR UNKNOWN INDICATION
     Dosage: 550 MG, BID
     Route: 048
  8. BACLOFEN. [Concomitant]
     Active Substance: BACLOFEN
     Indication: NECK PAIN
     Dosage: 0.5% UP TO 8 TIMES DAILY
     Route: 061
  9. DICLOFENAC [Concomitant]
     Active Substance: DICLOFENAC
     Indication: NECK PAIN
     Dosage: 3% UP TO 8 TIMES DAILY
     Route: 061
  10. LIDOCAINE. [Concomitant]
     Active Substance: LIDOCAINE
     Indication: NECK PAIN
     Dosage: 5% UP TO 8 TIMES DAILY
     Route: 061

REACTIONS (4)
  - Incorrect dose administered [Recovered/Resolved]
  - Incorrect route of drug administration [Recovered/Resolved]
  - Intentional product misuse [Recovered/Resolved]
  - Serotonin syndrome [Recovered/Resolved]
